FAERS Safety Report 9035685 (Version 1)
Quarter: 2013Q1

REPORT INFORMATION
  Report Type: Report from Study
  Country: US (occurrence: US)
  Receive Date: 20130129
  Receipt Date: 20130129
  Transmission Date: 20140127
  Serious: No
  Sender: FDA-Public Use
  Company Number: US-ABBOTT-12P-163-0924433-00

PATIENT
  Age: 57 Year
  Sex: Female
  Weight: 75.82 kg

DRUGS (13)
  1. HUMIRA 40 MG/0.8 ML PEN [Suspect]
     Indication: RHEUMATOID ARTHRITIS
     Dates: start: 20120212
  2. METHOTREXATE [Suspect]
     Indication: PRODUCT USED FOR UNKNOWN INDICATION
  3. PLAQUNIL [Concomitant]
     Indication: PRODUCT USED FOR UNKNOWN INDICATION
  4. MELOXICAM [Concomitant]
     Indication: PRODUCT USED FOR UNKNOWN INDICATION
  5. FOLIC ACID [Concomitant]
     Indication: PRODUCT USED FOR UNKNOWN INDICATION
  6. ATENOLOL [Concomitant]
     Indication: PRODUCT USED FOR UNKNOWN INDICATION
  7. LISINOPRIL [Concomitant]
     Indication: BLOOD PRESSURE
  8. CYMBALTA [Concomitant]
     Indication: PRODUCT USED FOR UNKNOWN INDICATION
  9. CALCIUM [Concomitant]
     Indication: PRODUCT USED FOR UNKNOWN INDICATION
  10. VITAMIN D3 [Concomitant]
     Indication: PRODUCT USED FOR UNKNOWN INDICATION
  11. UNKNOWN ANTI ACID [Concomitant]
     Indication: PRODUCT USED FOR UNKNOWN INDICATION
  12. ZIRTEC [Concomitant]
     Indication: PRODUCT USED FOR UNKNOWN INDICATION
  13. RELPAX [Concomitant]
     Indication: MIGRAINE

REACTIONS (8)
  - Fatigue [Not Recovered/Not Resolved]
  - Viral infection [Recovering/Resolving]
  - Nasopharyngitis [Recovering/Resolving]
  - Stomatitis [Unknown]
  - Oropharyngeal pain [Recovering/Resolving]
  - Laryngitis [Recovering/Resolving]
  - Cough [Recovering/Resolving]
  - Seasonal allergy [Not Recovered/Not Resolved]
